FAERS Safety Report 4586941-3 (Version None)
Quarter: 2005Q1

REPORT INFORMATION
  Report Type: 
  Country: None (occurrence: None)
  Receive Date: 20050218
  Receipt Date: 20050207
  Transmission Date: 20050727
  Serious: Yes (Hospitalization)
  Sender: FDA-Public Use
  Company Number: FR-BRISTOL-MYERS SQUIBB COMPANY-12856399

PATIENT
  Age: 41 Year
  Sex: Male

DRUGS (4)
  1. REYATAZ [Suspect]
     Indication: HIV INFECTION
     Route: 048
     Dates: start: 20040901, end: 20041001
  2. NORVIR [Suspect]
     Indication: HIV INFECTION
     Route: 048
     Dates: end: 20041001
  3. SUSTIVA [Concomitant]
     Indication: HIV INFECTION
     Dates: start: 20001201, end: 20041001
  4. EPIVIR [Concomitant]
     Indication: HIV INFECTION
     Dates: start: 20001201, end: 20041001

REACTIONS (1)
  - HEPATITIS [None]
